FAERS Safety Report 19694096 (Version 1)
Quarter: 2021Q3

REPORT INFORMATION
  Report Type: Spontaneous
  Country: DE (occurrence: DE)
  Receive Date: 20210813
  Receipt Date: 20210813
  Transmission Date: 20211014
  Serious: Yes (Hospitalization, Other)
  Sender: FDA-Public Use
  Company Number: DE-TEVA-2021-DE-1940746

PATIENT
  Age: 78 Year
  Sex: Male

DRUGS (11)
  1. TORASEMID [Suspect]
     Active Substance: TORSEMIDE
     Dosage: 20 MG,  1?1?0?0,
     Route: 048
  2. SPIRONOLACTON [Concomitant]
     Active Substance: SPIRONOLACTONE
     Dosage: 25 MILLIGRAM DAILY;  50 MG ,0.5?0?0?0,
     Route: 048
  3. APIXABAN [Suspect]
     Active Substance: APIXABAN
     Dosage: 5 MILLIGRAM DAILY;  0.5?0?0.5?0
     Route: 048
  4. LAXOBERAL ABFUHR?TROPFEN 7,5MG/ML [Concomitant]
     Dosage: 10 GTT DAILY;  1?0?0?0, DROPS
     Route: 048
  5. INDAPAMID [Suspect]
     Active Substance: INDAPAMIDE
     Dosage: 1.5 MILLIGRAM DAILY;   1?0?0?0,
     Route: 048
  6. MOVICOL BEUTEL [Concomitant]
     Active Substance: POLYETHYLENE GLYCOL 3350\POTASSIUM CHLORIDE\SODIUM BICARBONATE\SODIUM CHLORIDE
     Dosage: MAXIMUM THREE PIECES PER DAY, BAG
     Route: 048
  7. PANTOPRAZOL [Concomitant]
     Active Substance: PANTOPRAZOLE SODIUM
     Dosage: 40 MILLIGRAM DAILY;  1?0?0?0
     Route: 048
  8. LACTULOSE. [Concomitant]
     Active Substance: LACTULOSE
     Dosage: 30 ML DAILY;   1?1?1?0, JUICE
     Route: 048
  9. BALDRIAN [Concomitant]
     Active Substance: VALERIAN
     Dosage: 400 MILLIGRAM DAILY; 0?0?0?1
     Route: 048
  10. OMITHINASPARTAT HEPA MERZ 3000 [Concomitant]
     Dosage: 3 DOSAGE FORMS DAILY; 1?1?1?0
     Route: 048
  11. METAMIZOL [Concomitant]
     Active Substance: METAMIZOLE SODIUM
     Dosage: 30 GTT, A MAXIMUM OF FIVE TIMES A DAY, DROPS
     Route: 048

REACTIONS (5)
  - Waist circumference increased [Unknown]
  - Dyspnoea [Unknown]
  - Haematochezia [Unknown]
  - Dizziness [Unknown]
  - Abdominal discomfort [Unknown]
